FAERS Safety Report 10185916 (Version 1)
Quarter: 2014Q2

REPORT INFORMATION
  Report Type: Spontaneous
  Country: US (occurrence: US)
  Receive Date: 20140521
  Receipt Date: 20140521
  Transmission Date: 20141212
  Serious: No
  Sender: FDA-Public Use
  Company Number: US-009507513-1405USA003233

PATIENT
  Age: 86 Year
  Sex: Female

DRUGS (2)
  1. MIRALAX [Suspect]
     Indication: CONSTIPATION
     Dosage: 17 G, BID
     Route: 048
     Dates: start: 20140416, end: 20140416
  2. MIRALAX [Suspect]
     Dosage: UNK, QD
     Route: 048
     Dates: start: 20140414

REACTIONS (2)
  - Overdose [Not Recovered/Not Resolved]
  - Drug ineffective [Unknown]
